FAERS Safety Report 26132200 (Version 1)
Quarter: 2025Q4

REPORT INFORMATION
  Report Type: Spontaneous
  Country: KW (occurrence: KW)
  Receive Date: 20251208
  Receipt Date: 20251208
  Transmission Date: 20260117
  Serious: Yes (Other)
  Sender: PFIZER
  Company Number: KW-PFIZER INC-202500238732

PATIENT
  Age: 35 Year
  Sex: Female

DRUGS (1)
  1. ZIRABEV [Suspect]
     Active Substance: BEVACIZUMAB-BVZR
     Dosage: 1600 MG EVERY 3 WEEKS
     Route: 042

REACTIONS (3)
  - Haemorrhage [Unknown]
  - Gastritis bacterial [Unknown]
  - Uterine cervical pain [Unknown]
